FAERS Safety Report 19699740 (Version 1)
Quarter: 2021Q3

REPORT INFORMATION
  Report Type: Spontaneous
  Country: US (occurrence: US)
  Receive Date: 20210813
  Receipt Date: 20210813
  Transmission Date: 20211014
  Serious: Yes (Hospitalization)
  Sender: FDA-Public Use
  Company Number: US-MYLANLABS-2021M1050777

PATIENT
  Age: 49 Year
  Sex: Male

DRUGS (13)
  1. SODIUM CHLORIDE. [Suspect]
     Active Substance: SODIUM CHLORIDE
     Indication: MUCOSAL INFLAMMATION
     Dosage: RINSE
     Route: 065
  2. KETAMINE [Suspect]
     Active Substance: KETAMINE
     Dosage: 10 MILLIGRAM, Q6H, DOSE: 10MG (5MG PER NOSTRIL) AS NEEDED FOR PAIN; INTRAVENOUS SOLUTIO...
     Route: 045
  3. KETAMINE [Suspect]
     Active Substance: KETAMINE
     Indication: OROPHARYNGEAL PAIN
     Dosage: 20 MILLIGRAM, Q6H, DOSE: 20MG (10MG PER NOSTRIL); INTRAVENOUS SOLUTION WAS DELIVERED INTRANASALLY
     Route: 045
  4. ETOPOSIDE. [Suspect]
     Active Substance: ETOPOSIDE
     Indication: NASAL SINUS CANCER
     Dosage: UNK
     Route: 065
  5. PURE BAKING SODA [Suspect]
     Active Substance: SODIUM BICARBONATE
     Indication: MUCOSAL INFLAMMATION
     Dosage: UNK
     Route: 065
  6. KETAMINE [Suspect]
     Active Substance: KETAMINE
     Indication: PAIN
     Dosage: RINSE
     Route: 048
  7. OXYCODONE [Suspect]
     Active Substance: OXYCODONE
     Indication: OROPHARYNGEAL PAIN
     Dosage: APPROXIMATELY 45MG MORPHINE EQUIVALENT DAILY DOSE
     Route: 065
  8. BIOTENE                            /03475601/ [Suspect]
     Active Substance: SODIUM FLUORIDE\SODIUM MONOFLUOROPHOSPHATE
     Indication: MUCOSAL INFLAMMATION
     Dosage: UNK
     Route: 048
  9. KETAMINE [Suspect]
     Active Substance: KETAMINE
     Dosage: 10 MILLIGRAM, Q4H, DOSE: 10MG (5MG PER NOSTRIL); INTRAVENOUS SOLUTION WAS DELIVERED INTRANASALLY
     Route: 045
  10. CISPLATIN. [Suspect]
     Active Substance: CISPLATIN
     Indication: NASAL SINUS CANCER
     Dosage: UNK
     Route: 065
  11. DEXAMETHASONE. [Suspect]
     Active Substance: DEXAMETHASONE
     Indication: PAIN
     Dosage: UNK
     Route: 042
  12. CARBOPLATIN. [Suspect]
     Active Substance: CARBOPLATIN
     Indication: NASAL SINUS CANCER
     Dosage: UNK
     Route: 065
  13. HYDROMORPHONE [Suspect]
     Active Substance: HYDROMORPHONE
     Indication: PAIN
     Dosage: UNK
     Route: 042

REACTIONS (3)
  - Mucosal pain [Recovered/Resolved]
  - Drug ineffective [Unknown]
  - Mucosal inflammation [Recovered/Resolved]
